FAERS Safety Report 8179013-2 (Version None)
Quarter: 2012Q1

REPORT INFORMATION
  Report Type: 
  Country: None (occurrence: None)
  Receive Date: 20120302
  Receipt Date: 20090914
  Transmission Date: 20120608
  Serious: No
  Sender: FDA-Public Use
  Company Number: 2009BI029628

PATIENT
  Age: 56 Year
  Sex: Female

DRUGS (2)
  1. TYSABRI [Suspect]
     Indication: MULTIPLE SCLEROSIS
     Route: 042
     Dates: start: 20070816, end: 20101222
  2. TYSABRI [Suspect]
     Route: 042
     Dates: start: 20110805

REACTIONS (2)
  - NAUSEA [None]
  - VOMITING [None]
